FAERS Safety Report 10053018 (Version 2)
Quarter: 2014Q2

REPORT INFORMATION
  Report Type: Spontaneous
  Country: US (occurrence: US)
  Receive Date: 20140402
  Receipt Date: 20140404
  Transmission Date: 20141212
  Serious: Yes (Other)
  Sender: FDA-Public Use
  Company Number: CHPA2014US004443

PATIENT
  Age: 63 Year
  Sex: Female

DRUGS (8)
  1. VOLTAREN GEL [Suspect]
     Indication: BONE DISORDER
     Dosage: UNK
     Route: 061
  2. VOLTAREN GEL [Suspect]
     Indication: ARTHRALGIA
     Dosage: UNK
     Route: 061
  3. VOLTAREN GEL [Suspect]
     Indication: OFF LABEL USE
  4. VOLTAREN GEL [Suspect]
     Indication: LIGAMENT SPRAIN
  5. VOLTAREN GEL [Suspect]
     Indication: ARTHRITIS
  6. METFORMIN [Concomitant]
     Indication: DIABETES MELLITUS
     Route: 048
  7. NORCO [Concomitant]
     Indication: PAIN
     Dosage: UNK
     Dates: start: 2013
  8. TYLENOL [Concomitant]
     Indication: ARTHRITIS
     Route: 048

REACTIONS (9)
  - Colitis ulcerative [Not Recovered/Not Resolved]
  - Irritable bowel syndrome [Not Recovered/Not Resolved]
  - Gastric polyps [Not Recovered/Not Resolved]
  - Erythema [Not Recovered/Not Resolved]
  - Gastrointestinal inflammation [Not Recovered/Not Resolved]
  - Gastric ulcer [Not Recovered/Not Resolved]
  - Therapeutic response changed [Unknown]
  - Drug dispensed to wrong patient [Unknown]
  - Drug administered at inappropriate site [Unknown]
